FAERS Safety Report 6137705-0 (Version None)
Quarter: 2009Q1

REPORT INFORMATION
  Report Type: 
  Country: None (occurrence: None)
  Receive Date: 20090325
  Receipt Date: 20090317
  Transmission Date: 20090719
  Serious: Yes (Other)
  Sender: FDA-Public Use
  Company Number: 2009US000826

PATIENT
  Age: 51 Year
  Sex: 0
  Weight: 104.8 kg

DRUGS (3)
  1. LEXISCAN [Suspect]
     Indication: SCAN MYOCARDIAL PERFUSION
     Dosage: 0.4 MG, IV NOS
     Route: 042
     Dates: start: 20090225, end: 20090225
  2. CELEXA [Concomitant]
  3. LORAZEPAM [Concomitant]

REACTIONS (2)
  - HEART RATE INCREASED [None]
  - HYPERTENSION [None]
